FAERS Safety Report 23240103 (Version 1)
Quarter: 2023Q4

REPORT INFORMATION
  Report Type: Spontaneous
  Country: US (occurrence: None)
  Receive Date: 20231128
  Receipt Date: 20231128
  Transmission Date: 20240110
  Serious: No
  Sender: FDA-Public Use
  Company Number: None

PATIENT
  Age: 16 Year
  Sex: Female

DRUGS (2)
  1. APLISOL [Suspect]
     Active Substance: TUBERCULIN PURIFIED PROTEIN DERIVATIVE
     Indication: Tuberculin test
     Route: 023
  2. Apisol PPD [Concomitant]
     Dates: start: 20231117, end: 20231117

REACTIONS (2)
  - Laboratory test interference [None]
  - Surgical procedure repeated [None]

NARRATIVE: CASE EVENT DATE: 20231117
